FAERS Safety Report 25597685 (Version 2)
Quarter: 2025Q4

REPORT INFORMATION
  Report Type: Spontaneous
  Country: US (occurrence: US)
  Receive Date: 20250723
  Receipt Date: 20251029
  Transmission Date: 20260118
  Serious: No
  Sender: CHURCH & DWIGHT
  Company Number: US-CHURCH AND DWIGHT CO., INC-2025-CDW-01230

PATIENT
  Age: 29 Year
  Sex: Female

DRUGS (3)
  1. ZICAM COLD REMEDY NASAL SWABS (HOMEOPATHICS) [Suspect]
     Active Substance: HOMEOPATHICS\ZINC ACETATE\ZINC GLUCONATE
     Indication: Sinusitis
     Dosage: USED AS DIRECTED, USED IT BEFORE BED FOR ABOUT 3 DAYS
     Route: 045
     Dates: start: 202511
  2. CILOPRAM [CITALOPRAM HYDROBROMIDE] [Concomitant]
     Indication: Product used for unknown indication
     Dosage: (10MG +20MG)
     Route: 065
  3. ETHINYL ESTRADIOL\NORETHINDRONE [Concomitant]
     Active Substance: ETHINYL ESTRADIOL\NORETHINDRONE
     Indication: Product used for unknown indication
     Route: 065

REACTIONS (2)
  - Epistaxis [Recovered/Resolved]
  - Impaired work ability [Recovered/Resolved]

NARRATIVE: CASE EVENT DATE: 20251101
